FAERS Safety Report 26123960 (Version 1)
Quarter: 2025Q4

REPORT INFORMATION
  Report Type: Spontaneous
  Country: EU (occurrence: EU)
  Receive Date: 20251205
  Receipt Date: 20251205
  Transmission Date: 20260118
  Serious: Yes (Disabling, Other)
  Sender: ROCHE
  Company Number: EU-ROCHE-10000441559

PATIENT
  Age: 76 Year
  Sex: Male

DRUGS (4)
  1. VABYSMO [Suspect]
     Active Substance: FARICIMAB-SVOA
     Indication: Diabetic retinal oedema
     Route: 050
     Dates: start: 20240814
  2. VABYSMO [Suspect]
     Active Substance: FARICIMAB-SVOA
     Route: 050
     Dates: start: 202409
  3. VABYSMO [Suspect]
     Active Substance: FARICIMAB-SVOA
     Route: 050
     Dates: start: 202410
  4. EYLEA [Concomitant]
     Active Substance: AFLIBERCEPT

REACTIONS (4)
  - Arterial occlusive disease [Not Recovered/Not Resolved]
  - Embolism [Not Recovered/Not Resolved]
  - Venous occlusion [Not Recovered/Not Resolved]
  - Retinal vein occlusion [Not Recovered/Not Resolved]

NARRATIVE: CASE EVENT DATE: 20241031
